FAERS Safety Report 13946447 (Version 1)
Quarter: 2017Q3

REPORT INFORMATION
  Report Type: Spontaneous
  Country: FR (occurrence: FR)
  Receive Date: 20170907
  Receipt Date: 20170907
  Transmission Date: 20171128
  Serious: Yes (Other)
  Sender: FDA-Public Use
  Company Number: FR-MERCK KGAA-2025714

PATIENT
  Sex: Female

DRUGS (1)
  1. NOVOTHYROX [Suspect]
     Active Substance: LEVOTHYROXINE SODIUM
     Indication: PRODUCT USED FOR UNKNOWN INDICATION
     Dates: start: 201703

REACTIONS (8)
  - Abdominal discomfort [Unknown]
  - Fatigue [Unknown]
  - Tri-iodothyronine decreased [Unknown]
  - Loss of consciousness [Unknown]
  - Alopecia [Unknown]
  - Depression [Unknown]
  - Blood thyroid stimulating hormone increased [Unknown]
  - Urinary retention [Unknown]

NARRATIVE: CASE EVENT DATE: 201703
